FAERS Safety Report 4512749-0 (Version None)
Quarter: 2004Q4

REPORT INFORMATION
  Report Type: 
  Country: None (occurrence: None)
  Receive Date: 20040928
  Receipt Date: 20040624
  Transmission Date: 20050328
  Serious: No
  Sender: FDA-Public Use
  Company Number: 04P-163-0264829-00

PATIENT
  Age: 34 Year
  Sex: Female

DRUGS (10)
  1. HUMIRA [Suspect]
     Indication: RHEUMATOID ARTHRITIS
     Dosage: 40 MG 1 IN 2 WK SUBCUTANEOUS
     Route: 058
     Dates: start: 20040301
  2. MELOXICAM [Concomitant]
  3. FOLIC ACID [Concomitant]
  4. HYDROXYCHLOROQUINE SULFATE [Concomitant]
  5. CEVIMELINE HYDROCHLORIDE [Concomitant]
  6. MIGLITOL [Concomitant]
  7. CETIRIZINE HCL [Concomitant]
  8. LEVOTHYROXINE SODIUM [Concomitant]
  9. SINGULAIR [Concomitant]
  10. GLUCOSAMINE [Concomitant]

REACTIONS (1)
  - INJECTION SITE STINGING [None]
